FAERS Safety Report 5084302-4 (Version None)
Quarter: 2006Q3

REPORT INFORMATION
  Report Type: 
  Country: None (occurrence: None)
  Receive Date: 20060817
  Receipt Date: 20060817
  Transmission Date: 20061208
  Serious: No
  Sender: FDA-Public Use
  Company Number: None

PATIENT
  Sex: Female
  Weight: 61.2356 kg

DRUGS (2)
  1. TRINESSA - WATSON PHARMACEUTICAL [Suspect]
     Indication: ACNE
     Dosage: 28 DAY ONE DAILY ORAL
     Route: 048
     Dates: start: 20060201
  2. TRINESSA - WATSON PHARMACEUTICAL [Suspect]
     Indication: MENSTRUATION IRREGULAR
     Dosage: 28 DAY ONE DAILY ORAL
     Route: 048
     Dates: start: 20060201

REACTIONS (3)
  - ACNE [None]
  - CONDITION AGGRAVATED [None]
  - METRORRHAGIA [None]
